FAERS Safety Report 9846924 (Version 2)
Quarter: 2014Q3

REPORT INFORMATION
  Report Type: Report from Study
  Country: CA (occurrence: CA)
  Receive Date: 20140127
  Receipt Date: 20140814
  Transmission Date: 20150326
  Serious: Yes (Hospitalization)
  Sender: FDA-Public Use
  Company Number: CA-UCBSA-109407

PATIENT
  Age: 75 Year
  Sex: Female
  Weight: 111.36 kg

DRUGS (26)
  1. CERTOLIZUMAB PEGOL RA [Suspect]
     Active Substance: CERTOLIZUMAB PEGOL
     Indication: RHEUMATOID ARTHRITIS
     Dosage: 0-2-4 WEEKS
     Route: 058
     Dates: start: 20120329, end: 20120426
  2. METHOTREXATE [Suspect]
     Active Substance: METHOTREXATE
  3. PREDNISONE. [Suspect]
     Active Substance: PREDNISONE
     Dosage: FOR 2 WEEKS
     Route: 048
     Dates: start: 2014, end: 2014
  4. ACTONEL [Concomitant]
     Active Substance: RISEDRONATE SODIUM
     Dosage: 35 MG, WEEKLY (QW)
     Route: 048
  5. VITAMIN D3 [Concomitant]
     Active Substance: CHOLECALCIFEROL
     Dosage: 1000 UNITS
     Route: 048
  6. KLOR-CON [Concomitant]
     Active Substance: POTASSIUM CHLORIDE
     Dosage: 10 MEQ CR, 1 TABLET EVERY 48 HOURS
  7. PREDNISONE. [Suspect]
     Active Substance: PREDNISONE
     Dosage: FOR 2 WEEKS
     Route: 048
     Dates: start: 2014, end: 2014
  8. DUONEB [Concomitant]
     Active Substance: ALBUTEROL SULFATE\IPRATROPIUM BROMIDE
     Dosage: 3 ML EVERY 6 HRS, PRN
  9. TYLENOL ARTHRITIS PAIN [Concomitant]
     Active Substance: ACETAMINOPHEN
     Route: 048
  10. CERTOLIZUMAB PEGOL RA [Suspect]
     Active Substance: CERTOLIZUMAB PEGOL
     Dosage: 200 MG, EV 2 WEEKS(QOW)
     Route: 058
     Dates: start: 20120510
  11. CERTOLIZUMAB PEGOL RA [Suspect]
     Active Substance: CERTOLIZUMAB PEGOL
     Dosage: UNK
     Dates: start: 20140310
  12. K-DUR [Concomitant]
     Active Substance: POTASSIUM CHLORIDE
     Dosage: 1 TAB, EV 2 DAYS (QOD)
     Route: 048
  13. DELTASONE [Concomitant]
     Active Substance: PREDNISONE
     Dosage: 20 MG, 1 TAB DAILY
     Route: 048
  14. LASIX [Concomitant]
     Active Substance: FUROSEMIDE
     Dosage: 20 MG, ONCE DAILY (QD), 1 TAB IN AM
     Route: 048
  15. CALCIUM [Concomitant]
     Active Substance: CALCIUM
     Indication: MINERAL SUPPLEMENTATION
  16. CERTOLIZUMAB PEGOL RA [Suspect]
     Active Substance: CERTOLIZUMAB PEGOL
     Dosage: UNK
     Dates: end: 20131107
  17. PREDNISONE. [Suspect]
     Active Substance: PREDNISONE
     Dosage: FOR 2 WEEKS
     Route: 048
     Dates: start: 2014, end: 2014
  18. PREDNISONE. [Suspect]
     Active Substance: PREDNISONE
     Dosage: FOR 1 MONTH
     Route: 048
     Dates: start: 2014, end: 2014
  19. PROZAC [Concomitant]
     Active Substance: FLUOXETINE HYDROCHLORIDE
     Dosage: 20 MG, 1 TABLET
  20. ALENDRONATE [Concomitant]
     Active Substance: ALENDRONATE SODIUM
  21. FOLIC ACID. [Concomitant]
     Active Substance: FOLIC ACID
     Dosage: 15 MG, 1 TAB DAILY
     Route: 048
  22. PRILOSEC [Concomitant]
     Active Substance: OMEPRAZOLE MAGNESIUM
     Dosage: 40 MG, 1 CAPSULE EVERY AM
     Route: 048
  23. COMBIVENT RESPIMAT [Concomitant]
     Active Substance: ALBUTEROL SULFATE\IPRATROPIUM BROMIDE
     Dosage: 1 PUFF 4 TIMES DAILY
     Route: 048
  24. NASACORT AQ [Concomitant]
     Active Substance: TRIAMCINOLONE ACETONIDE
     Dosage: 2 SPRAYS INTO EACH NOSTRIL DAILY
  25. PREDNISONE. [Suspect]
     Active Substance: PREDNISONE
     Dosage: 60 MG, ONCE DAILY (QD) FOR TWO MONTHS
     Route: 048
  26. SYMBICORT [Concomitant]
     Active Substance: BUDESONIDE\FORMOTEROL FUMARATE DIHYDRATE
     Dosage: 2 PUFFS INTO LUNGS 2 TIMES DAILY

REACTIONS (6)
  - Organising pneumonia [Not Recovered/Not Resolved]
  - Peripheral swelling [Not Recovered/Not Resolved]
  - Arthralgia [Not Recovered/Not Resolved]
  - Sinus congestion [Not Recovered/Not Resolved]
  - Pulmonary mass [Not Recovered/Not Resolved]
  - Gastrooesophageal reflux disease [Recovering/Resolving]

NARRATIVE: CASE EVENT DATE: 201312
